FAERS Safety Report 20335007 (Version 1)
Quarter: 2022Q1

REPORT INFORMATION
  Report Type: Spontaneous
  Country: JP (occurrence: JP)
  Receive Date: 20220114
  Receipt Date: 20220114
  Transmission Date: 20220423
  Serious: Yes (Hospitalization)
  Sender: FDA-Public Use
  Company Number: JP-ferring-EVA202101812FERRINGPH

PATIENT

DRUGS (1)
  1. DESMOPRESSIN ACETATE [Suspect]
     Active Substance: DESMOPRESSIN ACETATE
     Indication: Product used for unknown indication
     Dosage: 60 UG
     Route: 065

REACTIONS (2)
  - Fracture [Unknown]
  - Intentional dose omission [Unknown]

NARRATIVE: CASE EVENT DATE: 20211122
